FAERS Safety Report 8600708-8 (Version None)
Quarter: 2012Q3

REPORT INFORMATION
  Report Type: 
  Country: None (occurrence: None)
  Receive Date: 20120817
  Receipt Date: 20120808
  Transmission Date: 20120928
  Serious: Yes (Other)
  Sender: FDA-Public Use
  Company Number: CO-JNJFOC-20120806299

PATIENT
  Age: 78 Year
  Sex: Female

DRUGS (1)
  1. GALANTAMINE HYDROBROMIDE [Suspect]
     Indication: DEMENTIA
     Route: 048
     Dates: start: 20120327

REACTIONS (3)
  - INCOHERENT [None]
  - LOSS OF CONSCIOUSNESS [None]
  - HYPOAESTHESIA ORAL [None]
